FAERS Safety Report 20874881 (Version 1)
Quarter: 2022Q2

REPORT INFORMATION
  Report Type: Spontaneous
  Country: CN (occurrence: CN)
  Receive Date: 20220526
  Receipt Date: 20220526
  Transmission Date: 20220720
  Serious: Yes (Death, Other)
  Sender: FDA-Public Use
  Company Number: CN-GILEAD-2022-0583078

PATIENT
  Age: 69 Year
  Sex: Male

DRUGS (1)
  1. YESCARTA [Suspect]
     Active Substance: AXICABTAGENE CILOLEUCEL
     Indication: Burkitt^s lymphoma
     Dosage: UNK
     Route: 042
     Dates: start: 20211130, end: 20211130

REACTIONS (1)
  - Death [Fatal]

NARRATIVE: CASE EVENT DATE: 20220402
